FAERS Safety Report 23134776 (Version 1)
Quarter: 2023Q4

REPORT INFORMATION
  Report Type: Other
  Country: CA (occurrence: None)
  Receive Date: 20231101
  Receipt Date: 20231101
  Transmission Date: 20240109
  Serious: Yes (Other)
  Sender: FDA-Public Use
  Company Number: CA-ROCHE-3448581

PATIENT

DRUGS (5)
  1. TRASTUZUMAB [Suspect]
     Active Substance: TRASTUZUMAB
     Indication: Gastrooesophageal cancer
     Dosage: (6 MG/KG THEN 4 MG/KG D1,15) EVERY 28 DAYS
     Route: 065
  2. PACLITAXEL [Suspect]
     Active Substance: PACLITAXEL
     Indication: Gastrooesophageal cancer
     Dosage: (D1, 8, 15) EVERY 28 DAYS
     Route: 065
  3. PACLITAXEL [Suspect]
     Active Substance: PACLITAXEL
     Dosage: (D1, 8, 15) EVERY 28 DAYS
     Route: 065
  4. TUCATINIB [Suspect]
     Active Substance: TUCATINIB
     Indication: Gastrooesophageal cancer
     Dosage: EVERY 28 DAYS
     Route: 065
  5. RAMUCIRUMAB [Suspect]
     Active Substance: RAMUCIRUMAB
     Indication: Gastrooesophageal cancer
     Dosage: DAY 1 AND 14
     Route: 065

REACTIONS (11)
  - Mucosal inflammation [Unknown]
  - Neutropenia [Unknown]
  - Weight decreased [Unknown]
  - Diarrhoea [Unknown]
  - Fatigue [Unknown]
  - Peripheral sensory neuropathy [Unknown]
  - Stomatitis [Unknown]
  - Constipation [Unknown]
  - Nausea [Unknown]
  - Pyrexia [Unknown]
  - Epistaxis [Unknown]
